FAERS Safety Report 23181641 (Version 2)
Quarter: 2023Q4

REPORT INFORMATION
  Report Type: Spontaneous
  Country: US (occurrence: US)
  Receive Date: 20231114
  Receipt Date: 20231221
  Transmission Date: 20240110
  Serious: Yes (Other)
  Sender: FDA-Public Use
  Company Number: US-BRISTOL-MYERS SQUIBB COMPANY-2023-158825

PATIENT
  Age: 15 Year
  Sex: Female
  Weight: 48 kg

DRUGS (1)
  1. ORENCIA [Suspect]
     Active Substance: ABATACEPT
     Indication: Rheumatoid arthritis
     Dates: start: 2023

REACTIONS (6)
  - Device operational issue [Unknown]
  - Inflammation [Unknown]
  - Arthropathy [Unknown]
  - Device safety feature issue [Unknown]
  - Foot deformity [Unknown]
  - Off label use [Unknown]
